FAERS Safety Report 17495127 (Version 1)
Quarter: 2020Q1

REPORT INFORMATION
  Report Type: Spontaneous
  Country: GB (occurrence: GB)
  Receive Date: 20200303
  Receipt Date: 20200303
  Transmission Date: 20200409
  Serious: Yes (Other)
  Sender: FDA-Public Use
  Company Number: GB-PURDUE PHARMA-GBR-2020-0075361

PATIENT
  Age: 75 Year
  Sex: Female
  Weight: 64 kg

DRUGS (12)
  1. BUTEC [Suspect]
     Active Substance: BUPRENORPHINE
     Indication: PRODUCT USED FOR UNKNOWN INDICATION
     Dosage: 1 DOSAGE FORM WEEKLY (STRENGTH 20 MICROGRAMS/ HOUR)
     Route: 062
     Dates: start: 20191108
  2. CALCIUM CARBONATE. [Concomitant]
     Active Substance: CALCIUM CARBONATE
     Dosage: 2 DF (DOSAGE FORM), DAILY
     Dates: start: 20180323
  3. ATORVASTATIN [Concomitant]
     Active Substance: ATORVASTATIN
     Dosage: 1 DF (DOSAGE FORM), DAILY
     Dates: start: 20181213
  4. PARACETAMOL [Concomitant]
     Active Substance: ACETAMINOPHEN
     Dosage: UNK, DAILY (REPORTED AS TAKE 1 OR 2)
     Dates: start: 20171108
  5. SUMATRIPTAN. [Concomitant]
     Active Substance: SUMATRIPTAN
     Indication: MIGRAINE
     Dosage: 1 DF, PRN (REPORTED AS AT ONSET OF MIGRAINE - A SECOND TABLET...)
     Dates: start: 20190628
  6. AMLODIPINE [Concomitant]
     Active Substance: AMLODIPINE BESYLATE
     Dosage: 1 DF (DOSAGE FORM), DAILY
     Dates: start: 20180504
  7. RANITIDINE. [Concomitant]
     Active Substance: RANITIDINE
     Dosage: 2  DF (DOSAGE FORM), DAILY
     Dates: start: 20171025
  8. AMITRIPTYLINE HYDROCHLORIDE. [Concomitant]
     Active Substance: AMITRIPTYLINE HYDROCHLORIDE
     Dosage: UNK, DAILY (REPRORTED AS 30-50MG. NIGHT)
     Route: 065
     Dates: start: 20190805
  9. FOLIC ACID. [Concomitant]
     Active Substance: FOLIC ACID
     Dosage: 1 DOSAGE FORM DAILY (EXCEPT ON DAY OF METHOTREXATE)
     Dates: start: 20171108
  10. CLENIL MODULITE [Concomitant]
     Active Substance: BECLOMETHASONE DIPROPIONATE
     Dosage: REPORTED AS INHALE 1 OR 2 PUFFS ON SKIN, ALLOW TO DRY AS RE
     Route: 055
     Dates: start: 20200121
  11. MORPHINE SULFATE. [Concomitant]
     Active Substance: MORPHINE SULFATE
     Dosage: UNK, PRN (REPORTED AS 2.5MLS TO 5MLS. LEAVE AT LEAST 2 H)
     Route: 065
     Dates: start: 20191125
  12. HYDROXYCHLOROQUINE SULFATE. [Concomitant]
     Active Substance: HYDROXYCHLOROQUINE SULFATE
     Dosage: 1 DF (DOASAGE FORM), DAILY
     Dates: start: 20171108

REACTIONS (2)
  - Rash [Unknown]
  - Erythema [Recovering/Resolving]

NARRATIVE: CASE EVENT DATE: 20200210
